FAERS Safety Report 18343110 (Version 1)
Quarter: 2020Q4

REPORT INFORMATION
  Report Type: Spontaneous
  Country: US (occurrence: US)
  Receive Date: 20201002
  Receipt Date: 20201002
  Transmission Date: 20210113
  Serious: No
  Sender: FDA-Public Use
  Company Number: None

PATIENT
  Age: 79 Year
  Sex: Female
  Weight: 77.6 kg

DRUGS (10)
  1. NIRAPARIB [Suspect]
     Active Substance: NIRAPARIB
     Indication: MALIGNANT PERITONEAL NEOPLASM
     Route: 048
     Dates: start: 20200827, end: 20200921
  2. ONDANSETRON ODT 8MG TABLET [Concomitant]
     Dates: start: 20200623
  3. BIOTIN 5 MG CAPSULE [Concomitant]
     Dates: start: 20151116
  4. SIMVASTATIN 40 MG TABLET [Concomitant]
     Dates: start: 20200710
  5. LISINOPRIL 20 MG TABLET [Concomitant]
     Active Substance: LISINOPRIL
     Dates: start: 20200710
  6. PROCHLORPERAZINE 10 MG [Concomitant]
     Active Substance: PROCHLORPERAZINE
     Dates: start: 20200401
  7. ASPIRIN 81 MG TABLET [Concomitant]
     Dates: start: 20160808
  8. OMEPRAZOLE 20 MG CAPSULE [Concomitant]
     Active Substance: OMEPRAZOLE
     Dates: start: 20200709
  9. ASPIRIN/DIPYRIDAMOLE 25-200 MG TABLET [Concomitant]
     Dates: start: 20200714
  10. HYDROCODONE/ACETAMINOPHEN 5/325 MG [Concomitant]
     Dates: start: 20200901, end: 20200904

REACTIONS (9)
  - Rash macular [None]
  - Oropharyngeal pain [None]
  - Lip swelling [None]
  - Stomatitis [None]
  - Lip erosion [None]
  - Purpura [None]
  - Chapped lips [None]
  - Rash [None]
  - Rash papular [None]

NARRATIVE: CASE EVENT DATE: 20200916
